FAERS Safety Report 10206903 (Version 1)
Quarter: 2014Q2

REPORT INFORMATION
  Report Type: Spontaneous
  Country: US (occurrence: None)
  Receive Date: 20140528
  Receipt Date: 20140528
  Transmission Date: 20141212
  Serious: Yes (Hospitalization, Disabling)
  Sender: FDA-Public Use
  Company Number: None

PATIENT
  Age: 22 Year
  Sex: Female
  Weight: 72.12 kg

DRUGS (1)
  1. METOCLOPRAMIDE [Suspect]
     Indication: MIGRAINE
     Dosage: GIVEN AT ER INTO A VEIN
     Route: 042

REACTIONS (4)
  - Muscle disorder [None]
  - Dysstasia [None]
  - No therapeutic response [None]
  - Walking aid user [None]
